FAERS Safety Report 8480994-8 (Version None)
Quarter: 2012Q3

REPORT INFORMATION
  Report Type: 
  Country: None (occurrence: None)
  Receive Date: 20120702
  Receipt Date: 20120621
  Transmission Date: 20120928
  Serious: Yes (Hospitalization)
  Sender: FDA-Public Use
  Company Number: SG-ELI_LILLY_AND_COMPANY-SG201112005804

PATIENT
  Age: 65 Year
  Sex: Male
  Weight: 58.2 kg

DRUGS (13)
  1. CISPLATIN [Suspect]
     Indication: LYMPHOMA
     Dosage: 82 MG, QD
     Route: 042
     Dates: start: 20111027, end: 20111027
  2. DEXAMETHASONE [Suspect]
     Indication: LYMPHOMA
     Dosage: 40 MG, QD FOR 4 DAYS
     Route: 048
     Dates: start: 20111027, end: 20111030
  3. LACTOFERRIN [Concomitant]
     Dosage: UNK
  4. ACYCLOVIR [Concomitant]
     Dosage: UNK
     Dates: start: 20111029, end: 20111105
  5. GEMCITABINE HYDROCHLORIDE [Suspect]
     Indication: LYMPHOMA
     Dosage: 820 MG, UNK
     Route: 042
     Dates: start: 20111027
  6. OTHER PHARMA COMPANY INV DRUG [Suspect]
     Indication: LYMPHOMA
     Dosage: 1.3 MG, UNK
     Route: 042
     Dates: start: 20111028, end: 20111028
  7. FLUTICASONE PROPIONATE/SALMETEROL [Concomitant]
     Indication: ASTHMA
     Dosage: UNK
  8. LYSOZYME [Concomitant]
     Dosage: UNK
     Dates: start: 20111029, end: 20111105
  9. RITUXIMAB [Suspect]
     Indication: LYMPHOMA
     Dosage: 600 MG, QD
     Route: 042
     Dates: start: 20111027, end: 20111027
  10. GLUCOSE OXIDASE [Concomitant]
     Dosage: UNK
     Dates: start: 20111029, end: 20111105
  11. BIOTENE                            /00203502/ [Concomitant]
  12. RANITIDINE [Concomitant]
     Dosage: UNK
     Dates: start: 20111029, end: 20111105
  13. CIPROFLOXACIN HYDROCHLORIDE [Concomitant]
     Dosage: UNK
     Dates: start: 20111029, end: 20111105

REACTIONS (1)
  - FEBRILE NEUTROPENIA [None]
